FAERS Safety Report 9170645 (Version 1)
Quarter: 2013Q1

REPORT INFORMATION
  Report Type: Spontaneous
  Country: US (occurrence: US)
  Receive Date: 20130319
  Receipt Date: 20130319
  Transmission Date: 20140127
  Serious: Yes (Hospitalization)
  Sender: FDA-Public Use
  Company Number: US-JNJFOC-20130304128

PATIENT
  Age: 75 None
  Sex: Male
  Weight: 96.16 kg

DRUGS (4)
  1. ZYTIGA [Suspect]
     Indication: PROSTATE CANCER
     Route: 048
     Dates: start: 20121022
  2. ZYTIGA [Suspect]
     Indication: PROSTATE CANCER
     Route: 048
     Dates: start: 201206, end: 201209
  3. LANTUS [Concomitant]
     Indication: DIABETES MELLITUS
     Dosage: EVERY EVENING
     Route: 058
     Dates: start: 1996
  4. HUMALOG [Concomitant]
     Indication: DIABETES MELLITUS
     Route: 058
     Dates: start: 1996

REACTIONS (3)
  - Cerebrovascular accident [Recovered/Resolved]
  - Visual impairment [Not Recovered/Not Resolved]
  - Abnormal loss of weight [Recovered/Resolved]
